FAERS Safety Report 7120238-2 (Version None)
Quarter: 2010Q4

REPORT INFORMATION
  Report Type: 
  Country: None (occurrence: None)
  Receive Date: 20101123
  Receipt Date: 20101103
  Transmission Date: 20110411
  Serious: Yes (Death, Hospitalization)
  Sender: FDA-Public Use
  Company Number: US-AMGEN-USASP2010001994

PATIENT

DRUGS (16)
  1. NPLATE [Suspect]
     Indication: IDIOPATHIC THROMBOCYTOPENIC PURPURA
     Dosage: 340 A?G, UNK
     Dates: start: 20091130, end: 20100427
  2. NPLATE [Suspect]
     Dosage: UNK
     Dates: start: 20091130, end: 20100427
  3. PROTONIX [Concomitant]
     Route: 042
  4. CARAFATE [Concomitant]
     Dosage: 1 G, TID
  5. COLACE [Concomitant]
     Dosage: 100 MG, BID
  6. PREDNISONE [Concomitant]
     Dosage: 20 MG, BID
     Dates: start: 20090703
  7. ALBUTEROL [Concomitant]
  8. OXYBUTYNIN [Concomitant]
     Dosage: 10 MG, QD
  9. ERGOCALCIFEROL [Concomitant]
     Dosage: 50000 UNIT, QMO
  10. INSULIN [Concomitant]
  11. LEVAQUIN [Concomitant]
     Dosage: 500 MG, QD
  12. LEVEMIR [Concomitant]
     Dosage: 38 UNIT, QD
     Route: 058
  13. AMLODIPINE [Concomitant]
     Dosage: 10 MG, QD
  14. TYLENOL (CAPLET) [Concomitant]
  15. MILK OF MAGNESIA TAB [Concomitant]
  16. MYLANTA                            /00036701/ [Concomitant]
     Dosage: UNK UNK, PRN

REACTIONS (9)
  - ATRIAL FIBRILLATION [None]
  - CARDIAC ARREST [None]
  - ENCEPHALOPATHY [None]
  - HYPOTENSION [None]
  - HYPOXIA [None]
  - PLATELET COUNT DECREASED [None]
  - RENAL FAILURE [None]
  - URINARY TRACT INFECTION [None]
  - VENTRICULAR TACHYCARDIA [None]
